FAERS Safety Report 13563725 (Version 3)
Quarter: 2017Q2

REPORT INFORMATION
  Report Type: Spontaneous
  Country: US (occurrence: US)
  Receive Date: 20170519
  Receipt Date: 20170609
  Transmission Date: 20170830
  Serious: No
  Sender: FDA-Public Use
  Company Number: US-TEVA-770090ACC

PATIENT
  Sex: Female

DRUGS (2)
  1. FENTANYL BUCCAL [Suspect]
     Active Substance: FENTANYL CITRATE
     Indication: PAIN
     Route: 048
  2. FENTANYL BUCCAL [Suspect]
     Active Substance: FENTANYL CITRATE
     Indication: BREAST CANCER
     Route: 048

REACTIONS (1)
  - Drug ineffective [Unknown]
